FAERS Safety Report 6219439-7 (Version None)
Quarter: 2009Q3

REPORT INFORMATION
  Report Type: 
  Country: None (occurrence: None)
  Receive Date: 20090603
  Receipt Date: 20081013
  Transmission Date: 20100115
  Serious: Yes (Death)
  Sender: FDA-Public Use
  Company Number: 591140

PATIENT
  Age: 25 Year
  Sex: Male

DRUGS (1)
  1. LARIAM [Suspect]
     Indication: MALARIA PROPHYLAXIS

REACTIONS (3)
  - ABDOMINAL PAIN UPPER [None]
  - COMPLETED SUICIDE [None]
  - PSYCHOGENIC PAIN DISORDER [None]
